FAERS Safety Report 8249533-0 (Version None)
Quarter: 2012Q2

REPORT INFORMATION
  Report Type: 
  Country: None (occurrence: None)
  Receive Date: 20120402
  Receipt Date: 20120328
  Transmission Date: 20120825
  Serious: No
  Sender: FDA-Public Use
  Company Number: US-TEVA-330825USA

PATIENT
  Sex: Female
  Weight: 42.676 kg

DRUGS (2)
  1. PLAN B ONE-STEP [Suspect]
     Indication: POST COITAL CONTRACEPTION
     Dosage: 1.5 MILLIGRAM;
     Route: 048
     Dates: start: 20120228, end: 20120228
  2. LEVONORGESTREL [Suspect]
     Indication: POST COITAL CONTRACEPTION
     Dates: start: 20120311

REACTIONS (3)
  - ABDOMINAL DISTENSION [None]
  - MENSTRUATION IRREGULAR [None]
  - MUSCLE SPASMS [None]
